FAERS Safety Report 5463636-5 (Version None)
Quarter: 2007Q3

REPORT INFORMATION
  Report Type: 
  Country: None (occurrence: None)
  Receive Date: 20070920
  Receipt Date: 20070912
  Transmission Date: 20080115
  Serious: Yes (Death, Other)
  Sender: FDA-Public Use
  Company Number: US-MERCK-0709USA01988

PATIENT
  Age: 43 Year
  Sex: Male

DRUGS (3)
  1. PRIMAXIN [Suspect]
     Indication: MYCOBACTERIUM ABSCESSUS INFECTION
     Route: 065
  2. LINEZOLID [Concomitant]
     Route: 065
  3. CLARITHROMYCIN [Concomitant]
     Route: 065

REACTIONS (3)
  - BLOOD CULTURE POSITIVE [None]
  - CONVULSION [None]
  - ENDOCARDITIS [None]
